FAERS Safety Report 5672555-0 (Version None)
Quarter: 2008Q1

REPORT INFORMATION
  Report Type: 
  Country: None (occurrence: None)
  Receive Date: 20080318
  Receipt Date: 20080318
  Transmission Date: 20080703
  Serious: No
  Sender: FDA-Public Use
  Company Number: None

PATIENT
  Age: 52 Year
  Sex: Female
  Weight: 53.5244 kg

DRUGS (3)
  1. BONIVA [Suspect]
     Indication: OSTEOPOROSIS
     Dosage: 1 150MG TABLET  1 X MONTHLY  PO
     Route: 048
     Dates: start: 20080201, end: 20080301
  2. BONIVA [Suspect]
  3. NORTRIPTYLINE HCL [Concomitant]

REACTIONS (13)
  - DIZZINESS [None]
  - FATIGUE [None]
  - GASTROOESOPHAGEAL REFLUX DISEASE [None]
  - HEART RATE INCREASED [None]
  - ILL-DEFINED DISORDER [None]
  - MALAISE [None]
  - MOVEMENT DISORDER [None]
  - MUSCULAR WEAKNESS [None]
  - MUSCULOSKELETAL CHEST PAIN [None]
  - NAUSEA [None]
  - PANIC ATTACK [None]
  - SENSATION OF HEAVINESS [None]
  - TREMOR [None]
